FAERS Safety Report 8954525 (Version 2)
Quarter: 2012Q4

REPORT INFORMATION
  Report Type: 
  Country: US (occurrence: US)
  Receive Date: 20121207
  Receipt Date: 20121218
  Transmission Date: 20130627
  Serious: Yes (Death)
  Sender: FDA-Public Use
  Company Number: US-GILEAD-2012-0065871

PATIENT
  Sex: Female

DRUGS (4)
  1. LETAIRIS [Suspect]
     Indication: PULMONARY HYPERTENSION
     Dosage: 10 mg, QD
     Route: 048
     Dates: start: 20111103, end: 20121130
  2. LETAIRIS [Suspect]
     Indication: RESTRICTIVE PULMONARY DISEASE
  3. LETAIRIS [Suspect]
     Indication: RADIATION FIBROSIS
  4. LETAIRIS [Suspect]
     Indication: UNEVALUABLE EVENT

REACTIONS (1)
  - Acute respiratory failure [Fatal]
